FAERS Safety Report 20816412 (Version 1)
Quarter: 2022Q2

REPORT INFORMATION
  Report Type: Report from Study
  Country: US (occurrence: US)
  Receive Date: 20220512
  Receipt Date: 20220512
  Transmission Date: 20220721
  Serious: Yes (Death, Other)
  Sender: FDA-Public Use
  Company Number: US-SUN PHARMACEUTICAL INDUSTRIES LTD-2021R1-336036

PATIENT
  Age: 32 Year
  Sex: Female

DRUGS (8)
  1. DECITABINE [Suspect]
     Active Substance: DECITABINE
     Indication: Chemotherapy
     Route: 065
  2. MITOXANTRONE [Suspect]
     Active Substance: MITOXANTRONE HYDROCHLORIDE
     Indication: Chemotherapy
     Route: 065
  3. CYTARABINE [Suspect]
     Active Substance: CYTARABINE
     Indication: Chemotherapy
     Route: 065
  4. DAUNORUBICIN [Suspect]
     Active Substance: DAUNORUBICIN
     Indication: Chemotherapy
     Route: 065
  5. ETOPOSIDE [Suspect]
     Active Substance: ETOPOSIDE
     Indication: Chemotherapy
     Route: 065
  6. FILGRASTIM [Suspect]
     Active Substance: FILGRASTIM
     Indication: Chemotherapy
     Route: 065
  7. FLUDARABINE [Suspect]
     Active Substance: FLUDARABINE PHOSPHATE
     Indication: Chemotherapy
     Route: 065
  8. IDARUBICIN [Suspect]
     Active Substance: IDARUBICIN
     Indication: Chemotherapy
     Route: 065

REACTIONS (2)
  - Therapy non-responder [Unknown]
  - Death [Fatal]
